FAERS Safety Report 17602592 (Version 1)
Quarter: 2020Q1

REPORT INFORMATION
  Report Type: Spontaneous
  Country: US (occurrence: US)
  Receive Date: 20200330
  Receipt Date: 20200330
  Transmission Date: 20200409
  Serious: No
  Sender: FDA-Public Use
  Company Number: US-SEPTODONT-201905235

PATIENT

DRUGS (1)
  1. XYLOCAINE [Suspect]
     Active Substance: LIDOCAINE HYDROCHLORIDE
     Indication: DENTAL LOCAL ANAESTHESIA
     Dosage: 6-7 PATIENTS OUT OF 10 NEED AN ADDITIONAL INJECTION
     Route: 004

REACTIONS (1)
  - Drug ineffective [Recovered/Resolved]
